FAERS Safety Report 4752882-1 (Version None)
Quarter: 2005Q3

REPORT INFORMATION
  Report Type: 
  Country: None (occurrence: None)
  Receive Date: 20050823
  Receipt Date: 20050808
  Transmission Date: 20060218
  Serious: Yes (Hospitalization)
  Sender: FDA-Public Use
  Company Number: 2005BI014931

PATIENT
  Age: 46 Year
  Sex: Female
  Weight: 97.5234 kg

DRUGS (6)
  1. AVONEX [Suspect]
     Indication: MULTIPLE SCLEROSIS
     Dosage: 30 UG;QW;IM
     Route: 030
     Dates: start: 20050301, end: 20050101
  2. AVONEX [Suspect]
     Indication: MULTIPLE SCLEROSIS
     Dosage: 30 UG;QW;IM  : 7.5 UG;QW;IM : 15 UG;QW;IM : 22.5 UG;QW;IM
     Route: 030
     Dates: start: 20050301, end: 20050101
  3. AVONEX [Suspect]
     Indication: MULTIPLE SCLEROSIS
     Dosage: 30 UG;QW;IM
     Route: 030
     Dates: start: 20050728
  4. LOTENSIN [Concomitant]
  5. VASOTEC RPD [Concomitant]
  6. ESTRADIOL [Concomitant]

REACTIONS (9)
  - ABDOMINAL DISTENSION [None]
  - ABNORMAL DREAMS [None]
  - BREAST TENDERNESS [None]
  - CORONARY ARTERY OCCLUSION [None]
  - DEPRESSION [None]
  - EYE IRRITATION [None]
  - INFLAMMATION [None]
  - MYOCARDIAL INFARCTION [None]
  - SCAR [None]
